FAERS Safety Report 22188127 (Version 3)
Quarter: 2023Q2

REPORT INFORMATION
  Report Type: Spontaneous
  Country: FR (occurrence: FR)
  Receive Date: 20230408
  Receipt Date: 20230524
  Transmission Date: 20230721
  Serious: Yes (Death, Other)
  Sender: FDA-Public Use
  Company Number: FR-INCYTE CORPORATION-2023IN003108

PATIENT

DRUGS (21)
  1. TAFASITAMAB [Suspect]
     Active Substance: TAFASITAMAB
     Indication: Diffuse large B-cell lymphoma
     Dosage: 1130 MILLIGRAM (12 MG/KG), C1 D1 (4 VIALS)
     Route: 042
     Dates: start: 20220831
  2. TAFASITAMAB [Suspect]
     Active Substance: TAFASITAMAB
     Dosage: 1130 MILLIGRAM (12 MG/KG), C1 D1 (2 VIALS)
     Route: 042
     Dates: start: 20220831
  3. TAFASITAMAB [Suspect]
     Active Substance: TAFASITAMAB
     Dosage: 1130 MILLIGRAM (12 MG/KG), C1 D4 (6 VIALS)
     Route: 042
     Dates: start: 20220903
  4. TAFASITAMAB [Suspect]
     Active Substance: TAFASITAMAB
     Dosage: 1130 MILLIGRAM (12 MG/KG), C1 D8 (6 VIALS)
     Route: 042
     Dates: start: 20220907
  5. TAFASITAMAB [Suspect]
     Active Substance: TAFASITAMAB
     Dosage: 1130 MILLIGRAM (12 MG/KG), C1 D15 (6 VIALS)
     Route: 042
     Dates: start: 20220914, end: 20220923
  6. COTRIMOXAZOLE [Concomitant]
     Active Substance: SULFAMETHOXAZOLE\TRIMETHOPRIM
     Indication: Infection prophylaxis
     Dosage: UNK
     Route: 065
     Dates: start: 20210601
  7. VALACYCLOVIR HYDROCHLORIDE [Concomitant]
     Active Substance: VALACYCLOVIR HYDROCHLORIDE
     Indication: Infection prophylaxis
     Dosage: UNK
     Route: 065
     Dates: start: 20210601
  8. FOLIC ACID [Concomitant]
     Active Substance: FOLIC ACID
     Indication: Anaemia prophylaxis
     Dosage: UNK
     Route: 065
     Dates: start: 20220601
  9. PENICILLIN V [Concomitant]
     Active Substance: PENICILLIN V
     Indication: Infection prophylaxis
     Dosage: UNK
     Route: 065
     Dates: start: 20220826
  10. CEFTRIAXONE [Concomitant]
     Active Substance: CEFTRIAXONE
     Indication: Post procedural fever
     Dosage: UNK
     Route: 065
     Dates: start: 20220824
  11. ALLOPURINOL [Concomitant]
     Active Substance: ALLOPURINOL
     Indication: Prophylaxis
     Dosage: UNK
     Route: 065
     Dates: start: 20220826
  12. LOVENOX [Concomitant]
     Active Substance: ENOXAPARIN SODIUM
     Indication: Deep vein thrombosis
     Dosage: UNK
     Route: 065
     Dates: start: 20220825
  13. METHYLPREDNISOLONE [Concomitant]
     Active Substance: METHYLPREDNISOLONE
     Indication: Ill-defined disorder
     Dosage: UNK
     Route: 065
     Dates: start: 20220826
  14. ANETHOLTRITHION [Concomitant]
     Active Substance: ANETHOLTRITHION
     Indication: Dry mouth
     Dosage: UNK
     Route: 065
     Dates: start: 20220830
  15. ONDANSETRON [Concomitant]
     Active Substance: ONDANSETRON
     Indication: Prophylaxis of nausea and vomiting
     Dosage: UNK
     Route: 065
     Dates: start: 20220826
  16. METOCLOPRAMIDE [Concomitant]
     Active Substance: METOCLOPRAMIDE
     Indication: Prophylaxis of nausea and vomiting
     Dosage: UNK
     Route: 065
     Dates: start: 20220826
  17. NEFOPAM [Concomitant]
     Active Substance: NEFOPAM
     Indication: Pain
     Dosage: UNK
     Route: 065
     Dates: start: 20220826
  18. VITAMIN K [Concomitant]
     Active Substance: PHYTONADIONE
     Indication: Hypovitaminosis
     Dosage: UNK
     Route: 065
     Dates: start: 20220829
  19. POLYETHYLENE GLYCOL 3350 [Concomitant]
     Active Substance: POLYETHYLENE GLYCOL 3350
     Indication: Constipation
     Dosage: UNK
     Route: 065
     Dates: start: 20220826
  20. ALPRAZOLAM [Concomitant]
     Active Substance: ALPRAZOLAM
     Indication: Anxiety
     Dosage: UNK
     Route: 065
     Dates: start: 20220826
  21. ZOPICLONE [Concomitant]
     Active Substance: ZOPICLONE
     Indication: Insomnia
     Dosage: UNK
     Route: 065
     Dates: start: 20220826

REACTIONS (3)
  - Diffuse large B-cell lymphoma [Fatal]
  - Disease progression [Fatal]
  - Drug ineffective [Unknown]

NARRATIVE: CASE EVENT DATE: 20210601
